FAERS Safety Report 8246645-2 (Version None)
Quarter: 2012Q1

REPORT INFORMATION
  Report Type: 
  Country: None (occurrence: None)
  Receive Date: 20120313
  Receipt Date: 20120227
  Transmission Date: 20120608
  Serious: Yes (Life-Threatening)
  Sender: FDA-Public Use
  Company Number: 0222776

PATIENT
  Age: 59 Year
  Sex: Male

DRUGS (6)
  1. AUGMENTINE (AUGMENTINE) [Concomitant]
  2. TACHOSIL [Suspect]
     Indication: LYMPHOSTASIS
     Dosage: 1 SPONGE 9.5 CM X 4.8 CM
     Route: 061
     Dates: start: 20111027
  3. ZOLPIDEM TARTRATE [Concomitant]
  4. HALDOL (HALOPERIDOL DECANOATE) (2 MILLIGRAM/MILLILITERS) [Concomitant]
  5. ACETAMINOPHEN [Concomitant]
  6. AMLOR (AMLODIPNE BESILATE) [Concomitant]

REACTIONS (2)
  - PULMONARY EMBOLISM [None]
  - JUGULAR VEIN THROMBOSIS [None]
